FAERS Safety Report 9124520 (Version 1)
Quarter: 2013Q1

REPORT INFORMATION
  Report Type: Spontaneous
  Country: US (occurrence: US)
  Receive Date: 20130116
  Receipt Date: 20130116
  Transmission Date: 20140127
  Serious: Yes (Other)
  Sender: FDA-Public Use
  Company Number: PHEH2013US001326

PATIENT
  Sex: Male
  Weight: 79.37 kg

DRUGS (5)
  1. TASIGNA [Suspect]
     Indication: CHRONIC MYELOID LEUKAEMIA
     Dates: start: 201012, end: 201012
  2. MULTIVITAMIN//VITAMINS NOS [Concomitant]
  3. CALCIUM [Concomitant]
  4. TRAMADOL [Concomitant]
  5. PERCOCET [Concomitant]

REACTIONS (1)
  - Mobility decreased [Not Recovered/Not Resolved]
